FAERS Safety Report 5922142-1 (Version None)
Quarter: 2008Q4

REPORT INFORMATION
  Report Type: 
  Country: None (occurrence: None)
  Receive Date: 20081017
  Receipt Date: 20081013
  Transmission Date: 20090506
  Serious: Yes (Hospitalization)
  Sender: FDA-Public Use
  Company Number: US-BAYER-200835655NA

PATIENT
  Age: 13 Year
  Sex: Female

DRUGS (2)
  1. YAZ [Suspect]
     Indication: DYSFUNCTIONAL UTERINE BLEEDING
     Route: 048
  2. NSAID [Concomitant]
     Indication: DRUG USE FOR UNKNOWN INDICATION

REACTIONS (3)
  - PELVIC VENOUS THROMBOSIS [None]
  - TRAUMATIC HAEMATOMA [None]
  - VENA CAVA THROMBOSIS [None]
